FAERS Safety Report 14659198 (Version 1)
Quarter: 2018Q1

REPORT INFORMATION
  Report Type: Spontaneous
  Country: IT (occurrence: IT)
  Receive Date: 20180320
  Receipt Date: 20180320
  Transmission Date: 20180509
  Serious: Yes (Other)
  Sender: FDA-Public Use
  Company Number: IT-PFIZER INC-2018111013

PATIENT
  Age: 48 Year
  Sex: Male

DRUGS (2)
  1. RIFAMPICIN [Suspect]
     Active Substance: RIFAMPIN
     Indication: HIDRADENITIS
     Dosage: UNK
     Dates: start: 20170301, end: 20170510
  2. CLINDAMYCIN HCL [Suspect]
     Active Substance: CLINDAMYCIN HYDROCHLORIDE
     Indication: HIDRADENITIS
     Dosage: UNK
     Dates: start: 20170301, end: 20170510

REACTIONS (4)
  - Hidradenitis [Not Recovered/Not Resolved]
  - Abscess [Not Recovered/Not Resolved]
  - Nodule [Not Recovered/Not Resolved]
  - Perineal fistula [Not Recovered/Not Resolved]

NARRATIVE: CASE EVENT DATE: 20170714
